FAERS Safety Report 5936655-X (Version None)
Quarter: 2008Q4

REPORT INFORMATION
  Report Type: 
  Country: None (occurrence: None)
  Receive Date: 20081021
  Receipt Date: 20071121
  Transmission Date: 20090506
  Serious: No
  Sender: FDA-Public Use
  Company Number: HQWYE411607AUG07

PATIENT
  Age: 69 Year
  Sex: Female
  Weight: 61.29 kg

DRUGS (11)
  1. PREMARIN [Suspect]
     Dosage: 0.3 MG DAILY, ORAL ; 6MG, ORAL
     Route: 048
     Dates: start: 19930101, end: 20020101
  2. PREMARIN [Suspect]
     Dosage: 0.3 MG DAILY, ORAL ; 6MG, ORAL
     Route: 048
     Dates: start: 20020101
  3. VITAMIN E [Concomitant]
  4. ASCORBIC ACID [Concomitant]
  5. CITRACAL (CALCIUM CITRATE) [Concomitant]
  6. MULTIVIT (VITAMINS NOS) [Concomitant]
  7. BIOTIN [Concomitant]
  8. FOLIC ACID [Concomitant]
  9. SELENIUM (SELENIUM) [Concomitant]
  10. PROMETRIUM [Concomitant]
  11. VITAMIN D [Concomitant]

REACTIONS (6)
  - DRY SKIN [None]
  - ERYTHEMA [None]
  - PRODUCT QUALITY ISSUE [None]
  - SWELLING FACE [None]
  - URTICARIA [None]
  - WHITE BLOOD CELL COUNT DECREASED [None]
